FAERS Safety Report 5821470-8 (Version None)
Quarter: 2008Q3

REPORT INFORMATION
  Report Type: 
  Country: None (occurrence: None)
  Receive Date: 20080724
  Receipt Date: 20080716
  Transmission Date: 20090109
  Serious: Yes (Other)
  Sender: FDA-Public Use
  Company Number: B0529326A

PATIENT
  Age: 58 Year
  Sex: Female

DRUGS (2)
  1. SERETIDE [Suspect]
     Indication: ASTHMA
     Dosage: 1PUFF TWICE PER DAY
     Route: 055
     Dates: start: 20060301
  2. VENTOLIN [Suspect]
     Indication: ASTHMA
     Dosage: 100MCG VARIABLE DOSE
     Route: 055
     Dates: start: 20060301

REACTIONS (2)
  - ASTHMA [None]
  - DYSPNOEA [None]
